FAERS Safety Report 21076596 (Version 4)
Quarter: 2024Q2

REPORT INFORMATION
  Report Type: Spontaneous
  Country: IN (occurrence: IN)
  Receive Date: 20220713
  Receipt Date: 20240520
  Transmission Date: 20240716
  Serious: Yes (Other)
  Sender: FDA-Public Use
  Company Number: IN-PFIZER INC-2019382891

PATIENT
  Age: 63 Year
  Sex: Female
  Weight: 70.3 kg

DRUGS (12)
  1. PALBOCICLIB [Suspect]
     Active Substance: PALBOCICLIB
     Indication: Breast cancer metastatic
     Dosage: 125 MG, 1X/DAY
     Route: 048
     Dates: start: 20180524
  2. PALBOCICLIB [Suspect]
     Active Substance: PALBOCICLIB
     Dosage: 125 MG, CYCLIC, (ONCE A DAY, WITH FOOD, 3 WEEKS ON AND 1 WEEK OFF )
     Route: 048
  3. LETROZOLE [Concomitant]
     Active Substance: LETROZOLE
     Dosage: 2.5 MG, 1X/DAY
     Route: 048
     Dates: start: 201805
  4. LETROZOLE [Concomitant]
     Active Substance: LETROZOLE
     Dosage: 2.5 MG, 1X/DAY, (MORNING), 1 TABLET, TO CONTINUE FOR 6 MONTHS
     Route: 048
  5. ZOMETA [Concomitant]
     Active Substance: ZOLEDRONIC ACID
     Dosage: 4 MG, AS NEEDED
     Route: 041
     Dates: start: 201805
  6. ZOMETA [Concomitant]
     Active Substance: ZOLEDRONIC ACID
     Dosage: 4 MG, WHEN NECESSARY, INJECTION, TO CONTINUE TILL FURTHER ORDERS.
     Route: 041
  7. LEVOTHYROXINE [Concomitant]
     Active Substance: LEVOTHYROXINE\LEVOTHYROXINE SODIUM
     Dosage: 1 DF, 1X/DAY
     Route: 048
  8. LEVOTHYROXINE [Concomitant]
     Active Substance: LEVOTHYROXINE\LEVOTHYROXINE SODIUM
     Dosage: 50 MG, 1X/DAY, (BEFORE BREAKFAST) (MORNING), 1 TABLET, TO CONTINUE TILL FURTHER ORDERS
     Route: 048
  9. PAN [Concomitant]
     Dosage: 1 DF, 1X/DAY
     Route: 048
  10. PAN [Concomitant]
     Dosage: PAN 40, ORAL, ONCE A DAY (BEFORE BREAKFAST) (MORNING), 1 TABLET, 1X/DAY
     Route: 048
  11. CALCIUM CARBONATE\CHOLECALCIFEROL [Concomitant]
     Active Substance: CALCIUM CARBONATE\CHOLECALCIFEROL
     Dosage: 1 DF, 1X/DAY
     Route: 048
  12. CALCIUM CARBONATE\CHOLECALCIFEROL [Concomitant]
     Active Substance: CALCIUM CARBONATE\CHOLECALCIFEROL
     Dosage: (AFTER BREAKFAST)(MORNING), 1 TABLET 1X/DAY
     Route: 048

REACTIONS (7)
  - Blood pressure systolic increased [Unknown]
  - Blood thyroid stimulating hormone increased [Unknown]
  - Heart rate increased [Unknown]
  - Respiratory rate increased [Unknown]
  - Body mass index increased [Unknown]
  - Pain [Unknown]
  - Product dose omission issue [Unknown]

NARRATIVE: CASE EVENT DATE: 20220706
